FAERS Safety Report 25385772 (Version 3)
Quarter: 2025Q3

REPORT INFORMATION
  Report Type: Spontaneous
  Country: EU (occurrence: EU)
  Receive Date: 20250602
  Receipt Date: 20250822
  Transmission Date: 20251021
  Serious: Yes (Hospitalization, Other)
  Sender: TEVA
  Company Number: EU-TEVA-VS-3337764

PATIENT
  Age: 70 Year
  Sex: Male
  Weight: 78 kg

DRUGS (6)
  1. OCTREOTIDE [Suspect]
     Active Substance: OCTREOTIDE
     Indication: Haemorrhage
     Route: 042
  2. PANTOPRAZOLE [Suspect]
     Active Substance: PANTOPRAZOLE
     Indication: Gastric ulcer
     Route: 042
     Dates: start: 20220915
  3. NOREPINEPHRINE BITARTRATE [Suspect]
     Active Substance: NOREPINEPHRINE BITARTRATE
     Indication: Shock haemorrhagic
     Route: 042
  4. ERYTHROMYCIN [Suspect]
     Active Substance: ERYTHROMYCIN
     Indication: Product used for unknown indication
     Route: 042
  5. CALCIUM CHLORIDE [Suspect]
     Active Substance: CALCIUM CHLORIDE
     Indication: Product used for unknown indication
     Route: 042
  6. CONFIDEX [Suspect]
     Active Substance: COAGULATION FACTOR IX HUMAN\COAGULATION FACTOR VII HUMAN\COAGULATION FACTOR X HUMAN\PROTEIN C\PROTEI
     Indication: Shock haemorrhagic
     Route: 042

REACTIONS (4)
  - Skin necrosis [Recovered/Resolved with Sequelae]
  - Injection site extravasation [Recovered/Resolved with Sequelae]
  - Motor dysfunction [Recovered/Resolved with Sequelae]
  - Erysipelas [Recovered/Resolved with Sequelae]

NARRATIVE: CASE EVENT DATE: 20220101
